FAERS Safety Report 7988074-2 (Version None)
Quarter: 2011Q4

REPORT INFORMATION
  Report Type: 
  Country: None (occurrence: None)
  Receive Date: 20111216
  Receipt Date: 20110802
  Transmission Date: 20120403
  Serious: No
  Sender: FDA-Public Use
  Company Number: US-BRISTOL-MYERS SQUIBB COMPANY-15796766

PATIENT
  Age: 68 Year
  Sex: Female
  Weight: 89 kg

DRUGS (2)
  1. ABILIFY [Suspect]
     Dosage: PRESCRIPTION:732856
  2. SERZONE [Concomitant]

REACTIONS (2)
  - GLYCOSYLATED HAEMOGLOBIN INCREASED [None]
  - WEIGHT DECREASED [None]
